FAERS Safety Report 9346909 (Version 1)
Quarter: 2013Q2

REPORT INFORMATION
  Report Type: Report from Study
  Country: US (occurrence: US)
  Receive Date: 20130613
  Receipt Date: 20130613
  Transmission Date: 20140414
  Serious: No
  Sender: FDA-Public Use
  Company Number: PHEH2013US012512

PATIENT
  Age: 68 Year
  Sex: Male

DRUGS (4)
  1. TASIGNA [Suspect]
     Indication: CHRONIC MYELOID LEUKAEMIA
     Dosage: 300 MG, BID
     Route: 048
     Dates: start: 20130507
  2. LIPITOR [Concomitant]
     Dosage: 10 MG, UNK
  3. TARKA [Concomitant]
  4. TRANDOLAPRIL [Concomitant]
     Dosage: 1 MG, UNK

REACTIONS (1)
  - Dysphonia [Unknown]
